FAERS Safety Report 16446579 (Version 6)
Quarter: 2022Q1

REPORT INFORMATION
  Report Type: Spontaneous
  Country: GR (occurrence: GR)
  Receive Date: 20190618
  Receipt Date: 20220225
  Transmission Date: 20220423
  Serious: Yes (Hospitalization, Other)
  Sender: FDA-Public Use
  Company Number: GR-VIOFAR-1218144

PATIENT
  Age: 37 Year
  Sex: Male

DRUGS (6)
  1. IBUPROFEN [Suspect]
     Active Substance: IBUPROFEN
     Indication: Product used for unknown indication
     Dosage: 20 DOSAGE FORM, TOTAL
     Route: 048
  2. ACETAMINOPHEN [Suspect]
     Active Substance: ACETAMINOPHEN
     Indication: Product used for unknown indication
     Dosage: 40 DOSAGE FORM, TOTAL
     Route: 048
  3. ASPIRIN [Suspect]
     Active Substance: ASPIRIN
     Indication: Product used for unknown indication
     Dosage: 40 DOSAGE FORM, TOTAL
     Route: 065
  4. ASPIRIN [Suspect]
     Active Substance: ASPIRIN
     Dosage: 30 DOSAGE FORM, TOTAL
     Route: 048
  5. NIMESULIDE [Suspect]
     Active Substance: NIMESULIDE
     Indication: Product used for unknown indication
     Dosage: 10 DOSAGE FORM, TOTAL
     Route: 048
  6. ALCOHOL [Suspect]
     Active Substance: ALCOHOL
     Indication: Product used for unknown indication
     Dosage: UNK (HIGH DOSE)

REACTIONS (14)
  - Cholestasis [Recovered/Resolved]
  - Hepatic lesion [Recovering/Resolving]
  - Transaminases increased [Recovered/Resolved]
  - Liver injury [Recovered/Resolved]
  - Condition aggravated [Recovered/Resolved]
  - Jaundice [Recovered/Resolved]
  - Confusional state [Recovered/Resolved]
  - Hepatic failure [Recovered/Resolved]
  - Intentional product misuse [Unknown]
  - Drug abuse [Recovered/Resolved]
  - Overdose [Recovered/Resolved]
  - International normalised ratio increased [Recovered/Resolved]
  - Blood bilirubin increased [Recovered/Resolved]
  - Medication error [Unknown]
